FAERS Safety Report 13916468 (Version 1)
Quarter: 2017Q3

REPORT INFORMATION
  Report Type: Report from Study
  Country: GB (occurrence: GB)
  Receive Date: 20170829
  Receipt Date: 20170829
  Transmission Date: 20171127
  Serious: Yes (Hospitalization)
  Sender: FDA-Public Use
  Company Number: PHFR2017GB007009

PATIENT
  Sex: Female

DRUGS (1)
  1. COSENTYX [Suspect]
     Active Substance: SECUKINUMAB
     Indication: ANKYLOSING SPONDYLITIS
     Dosage: 150 MG, QW (0,1,2 AND 3 ONCE MONTHLY FROM WEEK 4)
     Route: 058
     Dates: start: 20170815

REACTIONS (4)
  - Dizziness [Unknown]
  - Sensation of foreign body [Unknown]
  - Loss of consciousness [Unknown]
  - Injection related reaction [Unknown]
